FAERS Safety Report 21370388 (Version 1)
Quarter: 2022Q3

REPORT INFORMATION
  Report Type: Spontaneous
  Country: NL (occurrence: NL)
  Receive Date: 20220923
  Receipt Date: 20220923
  Transmission Date: 20221027
  Serious: Yes (Other)
  Sender: FDA-Public Use
  Company Number: NL-AMGEN-NLDSP2022160829

PATIENT
  Sex: Female
  Weight: 72 kg

DRUGS (2)
  1. REPATHA [Suspect]
     Active Substance: EVOLOCUMAB
     Indication: Low density lipoprotein
     Dosage: 1 DOSAGE FORM, 1X PER 2 WEEKS
     Route: 065
     Dates: start: 20220711, end: 20220902
  2. CODEINE [Concomitant]
     Active Substance: CODEINE
     Dosage: TABLET, 10 MG (MILLIGRAM)

REACTIONS (5)
  - Rheumatoid arthritis [Not Recovered/Not Resolved]
  - Dry mouth [Not Recovered/Not Resolved]
  - Respiratory tract infection [Not Recovered/Not Resolved]
  - Cough [Not Recovered/Not Resolved]
  - Myalgia [Not Recovered/Not Resolved]
